FAERS Safety Report 19233867 (Version 2)
Quarter: 2021Q2

REPORT INFORMATION
  Report Type: Spontaneous
  Country: US (occurrence: US)
  Receive Date: 20210508
  Receipt Date: 20210604
  Transmission Date: 20210717
  Serious: No
  Sender: FDA-Public Use
  Company Number: US-JNJFOC-20210445196

PATIENT
  Age: 83 Year
  Sex: Male
  Weight: 72.64 kg

DRUGS (2)
  1. MENS ROGAINE EXTRA STRENGTH [Suspect]
     Active Substance: MINOXIDIL
     Indication: ALOPECIA
     Dosage: TWICE A DAY 2 OR 3 PUMP APPLIED IN THE MORNING AND AT NIGHT FOLLOWED THE DIRECTION ON LABEL.?PRODUCT
     Route: 061
     Dates: start: 2020
  2. MENS ROGAINE EXTRA STRENGTH [Suspect]
     Active Substance: MINOXIDIL
     Dosage: TWICE A DAY 2 OR 3 PUMP APPLIED IN THE MORNING AND AT NIGHT FOLLOWED THE DIRECTION ON LABEL.?PRODUCT
     Route: 061
     Dates: start: 2020

REACTIONS (1)
  - Incorrect dose administered [Unknown]

NARRATIVE: CASE EVENT DATE: 2020
